FAERS Safety Report 15255246 (Version 1)
Quarter: 2018Q3

REPORT INFORMATION
  Report Type: Spontaneous
  Country: ES (occurrence: ES)
  Receive Date: 20180808
  Receipt Date: 20180808
  Transmission Date: 20181010
  Serious: Yes (Death, Hospitalization)
  Sender: FDA-Public Use
  Company Number: ES-PFIZER INC-2018313069

PATIENT
  Age: 69 Year
  Sex: Female
  Weight: 45 kg

DRUGS (2)
  1. OXALIPLATIN. [Suspect]
     Active Substance: OXALIPLATIN
     Indication: COLON NEOPLASM
     Dosage: UNK (XELOX SCHEME)
     Dates: start: 20180221, end: 20180221
  2. CAPECITABINE. [Suspect]
     Active Substance: CAPECITABINE
     Indication: COLON NEOPLASM
     Dosage: UNK (XELOX SCHEME)
     Dates: start: 20180221, end: 20180302

REACTIONS (4)
  - Peritonitis [Recovered/Resolved with Sequelae]
  - Acute respiratory failure [Fatal]
  - Pulmonary embolism [Fatal]
  - Colitis ischaemic [Recovered/Resolved with Sequelae]

NARRATIVE: CASE EVENT DATE: 20180404
